FAERS Safety Report 22605594 (Version 4)
Quarter: 2024Q1

REPORT INFORMATION
  Report Type: Spontaneous
  Country: JP (occurrence: JP)
  Receive Date: 20230615
  Receipt Date: 20240105
  Transmission Date: 20240410
  Serious: Yes (Other)
  Sender: FDA-Public Use
  Company Number: JP-ELI_LILLY_AND_COMPANY-JP202306002547

PATIENT
  Age: 73 Year
  Sex: Female
  Weight: 58 kg

DRUGS (7)
  1. MOUNJARO [Suspect]
     Active Substance: TIRZEPATIDE
     Indication: Type 2 diabetes mellitus
     Dosage: 2.5 MG, WEEKLY (1/W)
     Route: 058
     Dates: start: 20230516
  2. JARDIANCE [Concomitant]
     Active Substance: EMPAGLIFLOZIN
     Dosage: 2.5 MG, DAILY
     Dates: start: 20210401
  3. INDAPAMIDE [Concomitant]
     Active Substance: INDAPAMIDE
     Dosage: 1 MG, DAILY
     Dates: start: 20181220
  4. INDAPAMIDE [Concomitant]
     Active Substance: INDAPAMIDE
     Dosage: UNK
     Dates: start: 20181220
  5. CRESTOR [Concomitant]
     Active Substance: ROSUVASTATIN CALCIUM
     Dosage: 2.5 MG, DAILY
  6. AZELNIDIPINE\OLMESARTAN MEDOXOMIL [Concomitant]
     Active Substance: AZELNIDIPINE\OLMESARTAN MEDOXOMIL
     Dosage: 1 TABLET, DAILY
  7. METGLUCO [Concomitant]
     Active Substance: METFORMIN HYDROCHLORIDE
     Dosage: 500 MG, BID

REACTIONS (2)
  - Appendicitis [Recovered/Resolved]
  - Gallbladder enlargement [Unknown]

NARRATIVE: CASE EVENT DATE: 20230527
